FAERS Safety Report 4585509-2 (Version None)
Quarter: 2005Q1

REPORT INFORMATION
  Report Type: 
  Country: None (occurrence: None)
  Receive Date: 20050214
  Receipt Date: 20040913
  Transmission Date: 20050727
  Serious: Yes (Hospitalization)
  Sender: FDA-Public Use
  Company Number: 05-058

PATIENT
  Age: 83 Year
  Sex: Male

DRUGS (10)
  1. DEXAMETHASONE [Suspect]
     Indication: MULTIPLE MYELOMA
     Dosage: 40 MG/DAY, ORAL
     Route: 048
     Dates: start: 20011204, end: 20011211
  2. ASPIRIN [Concomitant]
  3. CITALOPRAM HYDROBROMIDE [Concomitant]
  4. DIGOXIN [Concomitant]
  5. EPOETIN ALPHA [Concomitant]
  6. FERROUS SULFATE TAB [Concomitant]
  7. FOSINOPRIL [Concomitant]
  8. FUROSEMIDE [Concomitant]
  9. POTASSIUM CHLORIDE [Concomitant]
  10. ZOLEDRONIC ACID [Concomitant]

REACTIONS (5)
  - COMA [None]
  - CONFUSIONAL STATE [None]
  - CONVULSION [None]
  - FAECAL INCONTINENCE [None]
  - URINARY INCONTINENCE [None]
